FAERS Safety Report 21234150 (Version 4)
Quarter: 2023Q2

REPORT INFORMATION
  Report Type: Report from Study
  Country: US (occurrence: US)
  Receive Date: 20220819
  Receipt Date: 20230419
  Transmission Date: 20230721
  Serious: Yes (Hospitalization, Other)
  Sender: FDA-Public Use
  Company Number: US-PFIZER INC-PV202200044471

PATIENT
  Age: 71 Year
  Sex: Male

DRUGS (2)
  1. BRAFTOVI [Suspect]
     Active Substance: ENCORAFENIB
     Indication: Colon cancer
     Dosage: TWO 75 MG CAPSULES ONCE DAILY
     Route: 048
     Dates: start: 20220803
  2. ERBITUX [Concomitant]
     Active Substance: CETUXIMAB
     Dosage: 100 MG

REACTIONS (12)
  - Pulmonary oedema [Unknown]
  - Dyspnoea [Unknown]
  - Chest pain [Not Recovered/Not Resolved]
  - Arthralgia [Not Recovered/Not Resolved]
  - Pain in extremity [Not Recovered/Not Resolved]
  - Cholelithiasis [Unknown]
  - Pain [Not Recovered/Not Resolved]
  - Productive cough [Unknown]
  - SARS-CoV-2 test positive [Not Recovered/Not Resolved]
  - Hypoaesthesia [Not Recovered/Not Resolved]
  - Joint stiffness [Not Recovered/Not Resolved]
  - Pain in extremity [Not Recovered/Not Resolved]

NARRATIVE: CASE EVENT DATE: 20220801
